FAERS Safety Report 17892272 (Version 9)
Quarter: 2021Q2

REPORT INFORMATION
  Report Type: Report from Study
  Country: MX (occurrence: MX)
  Receive Date: 20200612
  Receipt Date: 20210624
  Transmission Date: 20210717
  Serious: Yes (Other)
  Sender: FDA-Public Use
  Company Number: NVSC2019MX078115

PATIENT
  Age: 84 Year
  Sex: Male
  Weight: 54 kg

DRUGS (14)
  1. EXFORGE HCT [Suspect]
     Active Substance: AMLODIPINE BESYLATE\HYDROCHLOROTHIAZIDE\VALSARTAN
     Dosage: 0.5 DF, BID
     Route: 048
     Dates: start: 201912
  2. EXFORGE HCT [Suspect]
     Active Substance: AMLODIPINE BESYLATE\HYDROCHLOROTHIAZIDE\VALSARTAN
     Dosage: 0.25 DF, Q24H (10/320/25 MG) (STARTED APRROXIMATELY 2 AND A HALF YEARS AGO)
     Route: 048
  3. EXFORGE HCT [Suspect]
     Active Substance: AMLODIPINE BESYLATE\HYDROCHLOROTHIAZIDE\VALSARTAN
     Dosage: 0.25 MG, QD (10/320/25 MG)
     Route: 065
  4. QUESTRAN [Suspect]
     Active Substance: CHOLESTYRAMINE
     Dosage: 0.25 DF, QD
     Route: 048
  5. EXFORGE HCT [Suspect]
     Active Substance: AMLODIPINE BESYLATE\HYDROCHLOROTHIAZIDE\VALSARTAN
     Dosage: 0.5 DF
     Route: 048
     Dates: start: 20191108
  6. EXFORGE HCT [Suspect]
     Active Substance: AMLODIPINE BESYLATE\HYDROCHLOROTHIAZIDE\VALSARTAN
     Dosage: 0.25 DF (10/320/25 MG), BID
     Route: 048
  7. EXFORGE HCT [Suspect]
     Active Substance: AMLODIPINE BESYLATE\HYDROCHLOROTHIAZIDE\VALSARTAN
     Dosage: 0.25 MG, BID (10/320/25 MG)
     Route: 048
  8. EXFORGE HCT [Suspect]
     Active Substance: AMLODIPINE BESYLATE\HYDROCHLOROTHIAZIDE\VALSARTAN
     Dosage: UNK
     Route: 065
  9. EXFORGE HCT [Suspect]
     Active Substance: AMLODIPINE BESYLATE\HYDROCHLOROTHIAZIDE\VALSARTAN
     Dosage: 0.75 DF (10/320/25 MG), BID (1/2 MORNING AND 1/4 NIGHT)
     Route: 048
     Dates: start: 20191108
  10. EXFORGE HCT [Suspect]
     Active Substance: AMLODIPINE BESYLATE\HYDROCHLOROTHIAZIDE\VALSARTAN
     Dosage: 0.25 MG, Q24H (10/320/25 MG), MORE OR LESS ONE YEAR AGO
     Route: 048
  11. QUESTRAN [Suspect]
     Active Substance: CHOLESTYRAMINE
     Indication: DYSBIOSIS
     Dosage: 1 DF, QD
     Route: 048
  12. EXFORGE HCT [Suspect]
     Active Substance: AMLODIPINE BESYLATE\HYDROCHLOROTHIAZIDE\VALSARTAN
     Indication: HYPERTENSION
     Dosage: 0.5 DF (10/320/25 MG), BID
     Route: 048
     Dates: start: 20191108
  13. EXFORGE HCT [Suspect]
     Active Substance: AMLODIPINE BESYLATE\HYDROCHLOROTHIAZIDE\VALSARTAN
     Dosage: 0.25 DF, Q12H
     Route: 048
  14. EXFORGE HCT [Suspect]
     Active Substance: AMLODIPINE BESYLATE\HYDROCHLOROTHIAZIDE\VALSARTAN
     Dosage: 0.5 DF, BID (10/320/25 MG)
     Route: 048
     Dates: start: 202001

REACTIONS (29)
  - Pancreatic neoplasm [Not Recovered/Not Resolved]
  - Hepatic neoplasm [Unknown]
  - Renal cyst [Unknown]
  - Malaise [Unknown]
  - Blood pressure decreased [Unknown]
  - Insomnia [Recovering/Resolving]
  - Pancreatic disorder [Unknown]
  - Asthenia [Unknown]
  - Incorrect dose administered [Unknown]
  - Abdominal discomfort [Not Recovered/Not Resolved]
  - Hypertension [Not Recovered/Not Resolved]
  - Diarrhoea [Not Recovered/Not Resolved]
  - Shock [Unknown]
  - Abdominal pain [Unknown]
  - Decreased appetite [Not Recovered/Not Resolved]
  - Dizziness [Not Recovered/Not Resolved]
  - Wrong technique in product usage process [Unknown]
  - Hepatic lesion [Unknown]
  - Dyspepsia [Recovered/Resolved]
  - Back pain [Unknown]
  - Cardiovascular insufficiency [Unknown]
  - Haemoglobin decreased [Unknown]
  - Anaemia [Unknown]
  - Chest pain [Unknown]
  - Nausea [Recovered/Resolved]
  - Dysbiosis [Not Recovered/Not Resolved]
  - Off label use [Unknown]
  - Abdominal pain upper [Unknown]
  - Vomiting [Recovering/Resolving]

NARRATIVE: CASE EVENT DATE: 20191212
